FAERS Safety Report 26135141 (Version 1)
Quarter: 2025Q4

REPORT INFORMATION
  Report Type: Spontaneous
  Country: US (occurrence: US)
  Receive Date: 20251209
  Receipt Date: 20251209
  Transmission Date: 20260118
  Serious: No
  Sender: NOVEN
  Company Number: US-NOVEN PHARMACEUTICALS, INC.-2024-NOV-US001683

PATIENT
  Sex: Female
  Weight: 72.109 kg

DRUGS (1)
  1. ESTRADIOL [Suspect]
     Active Substance: ESTRADIOL
     Indication: Product used for unknown indication
     Dosage: 0.025 MG, UNKNOWN
     Route: 062
     Dates: start: 2024

REACTIONS (7)
  - Intermenstrual bleeding [Not Recovered/Not Resolved]
  - Accidental exposure to product [Recovered/Resolved]
  - Device difficult to use [Not Recovered/Not Resolved]
  - Product dose omission issue [Recovered/Resolved]
  - Product adhesion issue [Recovered/Resolved]
  - Device issue [Recovered/Resolved]
  - Off label use [Not Recovered/Not Resolved]

NARRATIVE: CASE EVENT DATE: 20240101
